FAERS Safety Report 11802151 (Version 1)
Quarter: 2015Q4

REPORT INFORMATION
  Report Type: Spontaneous
  Country: US (occurrence: None)
  Receive Date: 20151203
  Receipt Date: 20151203
  Transmission Date: 20160305
  Serious: Yes (Other)
  Sender: FDA-Public Use
  Company Number: None

PATIENT
  Age: 7 Year
  Sex: Female
  Weight: 22.68 kg

DRUGS (1)
  1. QUETIAPINE 100MG LUPIN [Suspect]
     Active Substance: QUETIAPINE
     Dosage: 100 MG QHS PO
     Route: 048
     Dates: start: 20151014, end: 20151020

REACTIONS (2)
  - Drug eruption [None]
  - Rash pruritic [None]

NARRATIVE: CASE EVENT DATE: 20151020
